FAERS Safety Report 8789000 (Version 2)
Quarter: 2012Q4

REPORT INFORMATION
  Report Type: 
  Country: TR (occurrence: TR)
  Receive Date: 20120917
  Receipt Date: 20121219
  Transmission Date: 20130627
  Serious: Yes (Hospitalization)
  Sender: FDA-Public Use
  Company Number: TR-AMGEN-TURSP2012057264

PATIENT
  Age: 51 Year
  Sex: Female

DRUGS (2)
  1. ENBREL [Suspect]
     Indication: ANKYLOSING SPONDYLITIS
     Dosage: 25 mg, 2x/week
     Route: 058
     Dates: start: 20120606, end: 20120828
  2. ENBREL [Suspect]
     Dosage: 25 mg, 2 times/wk
     Route: 058
     Dates: end: 201210

REACTIONS (3)
  - Pyrexia [Not Recovered/Not Resolved]
  - Hypersensitivity [Recovered/Resolved]
  - Erythema [Recovered/Resolved]
